FAERS Safety Report 4518352-0 (Version None)
Quarter: 2004Q4

REPORT INFORMATION
  Report Type: 
  Country: None (occurrence: None)
  Receive Date: 20041202
  Receipt Date: 20041119
  Transmission Date: 20050328
  Serious: Yes (Other)
  Sender: FDA-Public Use
  Company Number: 2004084202

PATIENT
  Sex: Female
  Weight: 58.9676 kg

DRUGS (3)
  1. DILANTIN KAPSEAL [Suspect]
     Indication: EPILEPSY
     Dosage: ORAL
     Route: 048
  2. ORAL CONTRACEPTIVES NOS (ORAL CONTRACEPTIVES NOS) [Suspect]
     Indication: CONTRACEPTION
     Dosage: ORAL
     Route: 048
     Dates: start: 20040701
  3. VITAMINS (VITAMINS) [Concomitant]

REACTIONS (11)
  - DEPRESSION [None]
  - DIZZINESS [None]
  - DRUG LEVEL INCREASED [None]
  - FUNGAL INFECTION [None]
  - LYMPHADENOPATHY [None]
  - MENSTRUATION IRREGULAR [None]
  - MOOD ALTERED [None]
  - MUSCLE TWITCHING [None]
  - NERVOUSNESS [None]
  - PARAESTHESIA [None]
  - TRIGEMINAL NEURALGIA [None]
